FAERS Safety Report 14880075 (Version 1)
Quarter: 2018Q2

REPORT INFORMATION
  Report Type: Report from Study
  Country: US (occurrence: US)
  Receive Date: 20180511
  Receipt Date: 20180511
  Transmission Date: 20180711
  Serious: Yes (Other)
  Sender: FDA-Public Use
  Company Number: US-ROCHE-2122653

PATIENT
  Age: 11 Year
  Sex: Female
  Weight: 33.14 kg

DRUGS (2)
  1. NUTROPIN AQ [Suspect]
     Active Substance: SOMATROPIN
     Indication: BODY HEIGHT BELOW NORMAL
     Dosage: NIGHTLY
     Route: 058
  2. NUTROPIN AQ [Suspect]
     Active Substance: SOMATROPIN
     Dosage: NIGHTLY
     Route: 058

REACTIONS (3)
  - Upper respiratory tract infection [Unknown]
  - Bronchial hyperreactivity [Unknown]
  - Osteoporosis [Unknown]

NARRATIVE: CASE EVENT DATE: 201405
